FAERS Safety Report 6198045-7 (Version None)
Quarter: 2009Q2

REPORT INFORMATION
  Report Type: 
  Country: None (occurrence: None)
  Receive Date: 20090521
  Receipt Date: 20090513
  Transmission Date: 20091009
  Serious: Yes (Hospitalization)
  Sender: FDA-Public Use
  Company Number: CA-JNJFOC-20061106490

PATIENT
  Sex: Male
  Weight: 119.5 kg

DRUGS (4)
  1. REMICADE [Suspect]
     Indication: ANKYLOSING SPONDYLITIS
     Dosage: ALSO SPECIFIED AS EVERY 2 MONTHS
     Route: 042
  2. METHOTREXATE [Concomitant]
     Route: 048
  3. VALPROIC ACID [Concomitant]
     Indication: EPILEPSY
     Route: 048
  4. DILANTIN [Concomitant]
     Indication: EPILEPSY
     Route: 048

REACTIONS (4)
  - BLOOD GLUCOSE DECREASED [None]
  - FATIGUE [None]
  - MALAISE [None]
  - NAUSEA [None]
